FAERS Safety Report 23453432 (Version 1)
Quarter: 2024Q1

REPORT INFORMATION
  Report Type: Spontaneous
  Country: CZ (occurrence: CZ)
  Receive Date: 20240129
  Receipt Date: 20240129
  Transmission Date: 20240410
  Serious: Yes (Other)
  Sender: FDA-Public Use
  Company Number: CZ-MYLANLABS-2024M1002275

PATIENT
  Age: 34 Year
  Sex: Male

DRUGS (7)
  1. LEFLUNOMIDE [Suspect]
     Active Substance: LEFLUNOMIDE
     Indication: Psoriatic arthropathy
     Dosage: 20 MILLIGRAM, QD
     Route: 065
     Dates: start: 2021, end: 2021
  2. CYCLOSPORINE [Suspect]
     Active Substance: CYCLOSPORINE
     Indication: Skin lesion
     Dosage: 150 MILLIGRAM, QD
     Route: 065
     Dates: start: 200508
  3. CYCLOSPORINE [Suspect]
     Active Substance: CYCLOSPORINE
     Indication: Cutaneous vasculitis
     Dosage: UNK UNK, QD
     Route: 065
     Dates: start: 201508
  4. FOLIC ACID [Concomitant]
     Active Substance: FOLIC ACID
     Indication: Product used for unknown indication
     Dosage: UNK
     Route: 065
     Dates: start: 200412
  5. METHOTREXATE [Concomitant]
     Active Substance: METHOTREXATE
     Indication: Product used for unknown indication
     Dosage: 15 MILLIGRAM, QW
     Route: 065
     Dates: start: 200412, end: 200508
  6. METHOTREXATE [Concomitant]
     Active Substance: METHOTREXATE
     Dosage: 20 MILLIGRAM, QW
     Route: 065
     Dates: start: 200508, end: 200511
  7. METHOTREXATE [Concomitant]
     Active Substance: METHOTREXATE
     Dosage: 12.5 MILLIGRAM, QW
     Route: 065
     Dates: start: 200511

REACTIONS (16)
  - Polyarthritis [Unknown]
  - Cutaneous vasculitis [Unknown]
  - Enthesopathy [Unknown]
  - Joint swelling [Unknown]
  - Disease recurrence [Unknown]
  - Folliculitis [Unknown]
  - Joint stiffness [Unknown]
  - Arthralgia [Unknown]
  - Nail psoriasis [Unknown]
  - Dactylitis [Unknown]
  - Fatigue [Unknown]
  - Diarrhoea [Unknown]
  - Blood pressure increased [Unknown]
  - Psoriasis [Recovering/Resolving]
  - Drug metabolite level high [Unknown]
  - Product use in unapproved indication [Unknown]

NARRATIVE: CASE EVENT DATE: 20080101
